FAERS Safety Report 7685138-8 (Version None)
Quarter: 2011Q3

REPORT INFORMATION
  Report Type: 
  Country: None (occurrence: None)
  Receive Date: 20110816
  Receipt Date: 20110808
  Transmission Date: 20111222
  Serious: Yes (Disabling)
  Sender: FDA-Public Use
  Company Number: JP-ASTELLAS-2011JP005074

PATIENT
  Sex: Male
  Weight: 43.4 kg

DRUGS (31)
  1. TACROLIMUS [Suspect]
     Indication: COLITIS ULCERATIVE
     Dosage: 1 MG, BID
     Route: 048
     Dates: start: 20101115, end: 20101118
  2. ASACOL [Concomitant]
     Indication: COLITIS ULCERATIVE
     Dosage: 1210 MG, UNKNOWN/D
     Route: 048
     Dates: start: 20101214, end: 20101226
  3. PREDNISOLONE [Concomitant]
     Dosage: 25 MG, UNKNOWN/D
     Route: 048
     Dates: start: 20101119, end: 20101125
  4. PREDNISOLONE [Concomitant]
     Dosage: 10 MG, UNKNOWN/D
     Route: 048
     Dates: start: 20101214, end: 20101227
  5. LEVOFLOXACIN [Concomitant]
     Dosage: 500 MG, UNKNOWN/D
     Route: 048
     Dates: start: 20100915, end: 20100922
  6. STERONEMA [Concomitant]
     Indication: COLITIS ULCERATIVE
     Dosage: 3 MG, UNKNOWN/D
     Route: 054
     Dates: start: 20101006, end: 20101027
  7. OMEPRAZOLE [Concomitant]
     Dosage: 20 MG, UNKNOWN/D
     Route: 065
     Dates: start: 20101028, end: 20101104
  8. PREDNISOLONE [Concomitant]
     Dosage: 15 MG, UNKNOWN/D
     Route: 048
     Dates: start: 20110524, end: 20110606
  9. PREDNISOLONE [Concomitant]
     Dosage: 5 MG, UNKNOWN/D
     Route: 048
     Dates: start: 20110705
  10. PREDNISOLONE [Concomitant]
     Dosage: 30 MG, UNKNOWN/D
     Route: 065
     Dates: start: 20101112, end: 20101118
  11. IMURAN [Concomitant]
     Dosage: 50 MG, UNKNOWN/D
     Route: 048
     Dates: start: 20100930, end: 20101102
  12. PREDNISOLONE [Concomitant]
     Indication: COLITIS ULCERATIVE
     Dosage: 20 MG, UNKNOWN/D
     Route: 048
     Dates: end: 20100825
  13. PREDNISOLONE [Concomitant]
     Dosage: 20 MG, UNKNOWN/D
     Route: 048
     Dates: start: 20101126, end: 20101202
  14. PREDNISOLONE [Concomitant]
     Dosage: 10 MG, UNKNOWN/D
     Route: 048
     Dates: start: 20110607, end: 20110704
  15. PREDNISOLONE [Concomitant]
     Dosage: 17.5 MG, UNKNOWN/D
     Route: 048
     Dates: start: 20100826, end: 20101027
  16. PREDNISOLONE [Concomitant]
     Dosage: 15 MG, UNKNOWN/D
     Route: 048
     Dates: start: 20101228, end: 20110124
  17. PREDNISOLONE [Concomitant]
     Dosage: 4 MG, UNKNOWN/D
     Route: 048
     Dates: start: 20110419, end: 20110509
  18. PREDNISOLONE [Concomitant]
     Dosage: 50 MG, UNKNOWN/D
     Route: 065
     Dates: start: 20101028, end: 20101104
  19. PREDNISOLONE [Concomitant]
     Dosage: 40 MG, UNKNOWN/D
     Route: 065
     Dates: start: 20101105, end: 20101111
  20. TACROLIMUS [Suspect]
     Dosage: 1.5 MG, BID
     Route: 048
     Dates: start: 20101119, end: 20101122
  21. TACROLIMUS [Suspect]
     Dosage: 1.5 MG, BID
     Route: 048
     Dates: start: 20101129, end: 20110220
  22. PREDNISOLONE [Concomitant]
     Dosage: 5 MG, UNKNOWN/D
     Route: 048
     Dates: start: 20110222, end: 20110418
  23. PREDNISOLONE [Concomitant]
     Dosage: 15 MG, UNKNOWN/D
     Route: 048
     Dates: start: 20101203, end: 20101213
  24. LEVOFLOXACIN [Concomitant]
     Dosage: 500 MG, UNKNOWN/D
     Route: 048
     Dates: start: 20110220, end: 20110304
  25. TACROLIMUS [Suspect]
     Dosage: 1.7 MG, BID
     Route: 048
     Dates: start: 20101123, end: 20101128
  26. GANCICLOVIR [Suspect]
     Dosage: 500 MG, UNKNOWN/D
     Route: 065
     Dates: start: 20101112, end: 20101118
  27. GANCICLOVIR [Suspect]
     Dosage: 500 MG, UNKNOWN/D
     Route: 065
     Dates: start: 20101027, end: 20101104
  28. IMURAN [Concomitant]
     Indication: COLITIS ULCERATIVE
     Dosage: 25 MG, UNKNOWN/D
     Route: 048
     Dates: start: 20100923, end: 20100929
  29. PREDNISOLONE [Concomitant]
     Dosage: 10 MG, UNKNOWN/D
     Route: 048
     Dates: start: 20110125, end: 20110221
  30. PREDNISOLONE [Concomitant]
     Dosage: 10 MG, UNKNOWN/D
     Route: 048
     Dates: start: 20110510, end: 20110523
  31. MEROPENEM [Concomitant]
     Dosage: 1.0 G, UNKNOWN/D
     Route: 065
     Dates: start: 20101027, end: 20101104

REACTIONS (1)
  - LIVER DISORDER [None]
